FAERS Safety Report 5028545-4 (Version None)
Quarter: 2006Q2

REPORT INFORMATION
  Report Type: 
  Country: None (occurrence: None)
  Receive Date: 20060617
  Receipt Date: 20060130
  Transmission Date: 20061013
  Serious: Yes (Disabling, Other)
  Sender: FDA-Public Use
  Company Number: JP-BOEHRINGER INGELHEIM PHARMACEUTICALS, INC.-2006-BP-01569YA

PATIENT
  Sex: Male
  Weight: 53 kg

DRUGS (8)
  1. HARNAL [Suspect]
     Indication: BENIGN PROSTATIC HYPERPLASIA
     Route: 048
     Dates: start: 20030423
  2. ASPIRIN [Concomitant]
     Dates: start: 20020101
  3. GLICLAZIDE [Concomitant]
     Dates: start: 20020101
  4. VOGLIBOSE [Concomitant]
     Dates: start: 20020101
  5. TOCOPHERYL NICOTINATE [Concomitant]
     Dates: start: 20020101
  6. THEOPHYLLINE [Concomitant]
     Dates: start: 20020101
  7. DIAZEPAM [Concomitant]
     Indication: TREMOR
  8. FLUOROMETHOLONE [Concomitant]

REACTIONS (2)
  - CATARACT NUCLEAR [None]
  - IRIS DISORDER [None]
